FAERS Safety Report 11634606 (Version 2)
Quarter: 2015Q4

REPORT INFORMATION
  Report Type: Report from Study
  Country: US (occurrence: US)
  Receive Date: 20151015
  Receipt Date: 20151203
  Transmission Date: 20160304
  Serious: Yes (Hospitalization, Other)
  Sender: FDA-Public Use
  Company Number: US-GILEAD-2015-0176683

PATIENT
  Age: 69 Year
  Sex: Female

DRUGS (2)
  1. IDELALISIB [Suspect]
     Active Substance: IDELALISIB
     Indication: LYMPHOMA
     Dosage: 150 MG, BID
     Route: 048
     Dates: start: 20150111
  2. IDELALISIB [Suspect]
     Active Substance: IDELALISIB
     Dosage: 150 MG, UNK
     Route: 048

REACTIONS (6)
  - Lymphadenopathy [Unknown]
  - Fear [Unknown]
  - Back pain [Unknown]
  - Obstructive uropathy [Unknown]
  - Groin pain [Unknown]
  - Depression [Unknown]

NARRATIVE: CASE EVENT DATE: 2015
